FAERS Safety Report 5203568-0 (Version None)
Quarter: 2007Q1

REPORT INFORMATION
  Report Type: 
  Country: None (occurrence: None)
  Receive Date: 20070110
  Receipt Date: 20070110
  Transmission Date: 20070707
  Serious: Yes (Other)
  Sender: FDA-Public Use
  Company Number: FR-GLAXOSMITHKLINE-B0451135A

PATIENT
  Age: 31 Year
  Sex: Female

DRUGS (2)
  1. LAMICTAL [Suspect]
     Indication: EPILEPSY
     Dosage: 125MG PER DAY
     Route: 048
  2. FOLATE [Concomitant]
     Route: 065
     Dates: start: 20050501, end: 20060701

REACTIONS (8)
  - BETA HAEMOLYTIC STREPTOCOCCAL INFECTION [None]
  - COMPLEX PARTIAL SEIZURES [None]
  - CONDITION AGGRAVATED [None]
  - DRUG EXPOSURE DURING PREGNANCY [None]
  - EPILEPSY [None]
  - GRAND MAL CONVULSION [None]
  - INFECTION [None]
  - PREGNANCY [None]
